FAERS Safety Report 9913221 (Version 1)
Quarter: 2014Q1

REPORT INFORMATION
  Report Type: Spontaneous
  Country: US (occurrence: None)
  Receive Date: 20140219
  Receipt Date: 20140219
  Transmission Date: 20141002
  Serious: No
  Sender: FDA-Public Use
  Company Number: None

PATIENT
  Age: 8 Year
  Sex: Male
  Weight: 43.32 kg

DRUGS (2)
  1. DEXMETHYLPHENIDATE HYDROCHLORIDE EXTENDED-RELEASE [Suspect]
     Indication: ATTENTION DEFICIT/HYPERACTIVITY DISORDER
     Dosage: 15MG?1CAP EVERY AM PO
     Route: 048
     Dates: start: 201312, end: 201401
  2. DEXMETHYLPHENIDATE HYDROCHLORIDE [Suspect]
     Indication: ATTENTION DEFICIT/HYPERACTIVITY DISORDER
     Dosage: 5 MG?1 TAB EVERY PM?PO
     Route: 048
     Dates: start: 201312, end: 201401

REACTIONS (3)
  - Drug ineffective [None]
  - Disturbance in attention [None]
  - Psychomotor hyperactivity [None]
